FAERS Safety Report 9526553 (Version 1)
Quarter: 2013Q1

REPORT INFORMATION
  Report Type: Spontaneous
  Country: US (occurrence: None)
  Receive Date: 20130305
  Receipt Date: 20130305
  Transmission Date: 20140127
  Serious: Yes (Hospitalization)
  Sender: FDA-Public Use
  Company Number: 163-21880-12031279

PATIENT
  Age: 68 Year
  Sex: Male

DRUGS (12)
  1. REVLIMID [Suspect]
     Indication: PLASMA CELL MYELOMA
     Route: 048
     Dates: start: 20091005
  2. ASA (ACETYLSALICYLIC ACID) [Concomitant]
  3. ARIXTRA (FONDAPARINUX SODIUM) [Concomitant]
  4. WARFARIN [Concomitant]
  5. VITAMIN K (PHYTOMENADIONE) [Concomitant]
  6. RED BLOOD CELLS [Concomitant]
  7. HYDROCODONE APAP (PROCET) [Concomitant]
  8. GABAPENTIN [Concomitant]
  9. ROPINIROLE [Concomitant]
  10. METFORMIN [Concomitant]
  11. LISINOPRIL [Concomitant]
  12. DECADRON (DEXAMETHASONE) [Concomitant]

REACTIONS (4)
  - Fall [None]
  - Pathological fracture [None]
  - Plasmacytoma [None]
  - Arthralgia [None]
